FAERS Safety Report 9102960 (Version 2)
Quarter: 2013Q1

REPORT INFORMATION
  Report Type: Spontaneous
  Country: FR (occurrence: FR)
  Receive Date: 20130218
  Receipt Date: 20130304
  Transmission Date: 20140127
  Serious: Yes (Hospitalization, Other)
  Sender: FDA-Public Use
  Company Number: FR-BRISTOL-MYERS SQUIBB COMPANY-17387481

PATIENT
  Age: 57 Year
  Sex: Female

DRUGS (2)
  1. LYSODREN [Suspect]
     Indication: METASTASES TO LIVER
     Route: 048
     Dates: start: 201010, end: 20121127
  2. LYSODREN [Suspect]
     Indication: ADRENOCORTICAL CARCINOMA
     Route: 048
     Dates: start: 201010, end: 20121127

REACTIONS (6)
  - Hypothyroidism [Not Recovered/Not Resolved]
  - Blood thyroid stimulating hormone decreased [Not Recovered/Not Resolved]
  - Asthenia [Unknown]
  - Psychomotor skills impaired [Recovering/Resolving]
  - Confusional state [Recovering/Resolving]
  - Hypoproteinaemia [Not Recovered/Not Resolved]
